FAERS Safety Report 4482398-1 (Version None)
Quarter: 2004Q4

REPORT INFORMATION
  Report Type: 
  Country: None (occurrence: None)
  Receive Date: 20041022
  Receipt Date: 20040423
  Transmission Date: 20050328
  Serious: No
  Sender: FDA-Public Use
  Company Number: US-BRISTOL-MYERS SQUIBB COMPANY-12568986

PATIENT
  Age: 86 Year
  Sex: Female
  Weight: 73 kg

DRUGS (5)
  1. BUSPAR [Suspect]
     Indication: NERVOUSNESS
     Route: 048
  2. HYDROCHLOROTHIAZIDE [Concomitant]
     Route: 048
  3. COZAAR [Concomitant]
  4. PROTONIX [Concomitant]
  5. TOPROL-XL [Concomitant]

REACTIONS (4)
  - ABDOMINAL PAIN [None]
  - ABDOMINAL RIGIDITY [None]
  - ASTHENIA [None]
  - PARAESTHESIA [None]
